FAERS Safety Report 7701184-X (Version None)
Quarter: 2011Q3

REPORT INFORMATION
  Report Type: 
  Country: None (occurrence: None)
  Receive Date: 20110822
  Receipt Date: 20110805
  Transmission Date: 20111222
  Serious: Yes (Hospitalization)
  Sender: FDA-Public Use
  Company Number: US-GLAXOSMITHKLINE-A0834462A

PATIENT
  Age: 50 Year
  Sex: Male
  Weight: 94.5 kg

DRUGS (19)
  1. LANTUS [Concomitant]
  2. NORVASC [Concomitant]
  3. CLONIDINE [Concomitant]
  4. RENAGEL [Concomitant]
  5. LASIX [Concomitant]
  6. CARDURA [Concomitant]
  7. PRILOSEC [Concomitant]
  8. TOPROL-XL [Concomitant]
  9. PROCRIT [Concomitant]
  10. ZOCOR [Concomitant]
  11. ZAROXOLYN [Concomitant]
  12. SEVELAMER [Concomitant]
  13. NEPHROCAPS [Concomitant]
  14. ASPIRIN [Concomitant]
  15. PLAVIX [Concomitant]
  16. CIALIS [Concomitant]
  17. HECTOROL [Concomitant]
  18. AVANDIA [Suspect]
     Indication: DIABETES MELLITUS
     Dosage: 2MG PER DAY
     Route: 048
     Dates: start: 20050101, end: 20080801
  19. EPOGEN [Concomitant]

REACTIONS (2)
  - CEREBROVASCULAR ACCIDENT [None]
  - MYOCARDIAL INFARCTION [None]
